FAERS Safety Report 6854298-0 (Version None)
Quarter: 2010Q3

REPORT INFORMATION
  Report Type: 
  Country: None (occurrence: None)
  Receive Date: 20100717
  Receipt Date: 20080102
  Transmission Date: 20110219
  Serious: Yes (Other)
  Sender: FDA-Public Use
  Company Number: US-PFIZER INC-2008001381

PATIENT
  Sex: Male
  Weight: 61.363 kg

DRUGS (2)
  1. CHANTIX [Suspect]
     Indication: SMOKING CESSATION THERAPY
     Route: 048
     Dates: start: 20071223, end: 20071229
  2. ZYRTEC-D 12 HOUR [Concomitant]

REACTIONS (3)
  - CONSTIPATION [None]
  - DYSPNOEA [None]
  - SLEEP PHASE RHYTHM DISTURBANCE [None]
